FAERS Safety Report 9146735 (Version 1)
Quarter: 2013Q1

REPORT INFORMATION
  Report Type: Spontaneous
  Country: US (occurrence: None)
  Receive Date: 20130228
  Receipt Date: 20130228
  Transmission Date: 20140127
  Serious: Yes (Other)
  Sender: FDA-Public Use
  Company Number: None

PATIENT
  Age: 57 Year
  Sex: Male
  Weight: 102.06 kg

DRUGS (3)
  1. VIREAD [Suspect]
     Indication: HEPATITIS B
     Route: 048
     Dates: start: 20130202, end: 20130208
  2. RITUXAN/BENDAMUSTINE [Concomitant]
  3. HEP B [Concomitant]

REACTIONS (3)
  - Homicidal ideation [None]
  - Anger [None]
  - Abnormal dreams [None]
